FAERS Safety Report 14636414 (Version 1)
Quarter: 2018Q1

REPORT INFORMATION
  Report Type: Spontaneous
  Country: US (occurrence: US)
  Receive Date: 20180314
  Receipt Date: 20180314
  Transmission Date: 20180509
  Serious: No
  Sender: FDA-Public Use
  Company Number: US-GLENMARK PHARMACEUTICALS-2017GMK029545

PATIENT

DRUGS (2)
  1. MUPIROCIN. [Suspect]
     Active Substance: MUPIROCIN
     Indication: RASH
     Dosage: 1 DF, OD
     Route: 061
     Dates: start: 20171026, end: 20171028
  2. MUPIROCIN. [Suspect]
     Active Substance: MUPIROCIN
     Indication: PRURITUS

REACTIONS (4)
  - Rash [Recovered/Resolved]
  - Product use in unapproved indication [Unknown]
  - Expired product administered [Unknown]
  - Pruritus [Recovered/Resolved]

NARRATIVE: CASE EVENT DATE: 20171026
